FAERS Safety Report 9471949 (Version 2)
Quarter: 2013Q3

REPORT INFORMATION
  Report Type: Spontaneous
  Country: US (occurrence: US)
  Receive Date: 20130823
  Receipt Date: 20130906
  Transmission Date: 20140515
  Serious: Yes (Hospitalization)
  Sender: FDA-Public Use
  Company Number: US-BIOGENIDEC-2013BI077259

PATIENT
  Age: 53 Year
  Sex: Female

DRUGS (4)
  1. AVONEX [Suspect]
     Indication: MULTIPLE SCLEROSIS
     Route: 030
  2. AVONEX [Suspect]
     Indication: MULTIPLE SCLEROSIS
     Route: 030
     Dates: start: 20020516, end: 20091218
  3. AVONEX [Suspect]
     Indication: MULTIPLE SCLEROSIS
     Route: 030
     Dates: start: 2010
  4. AVONEX [Suspect]
     Indication: MULTIPLE SCLEROSIS
     Route: 030
     Dates: start: 20110511

REACTIONS (17)
  - Medical induction of coma [Recovered/Resolved]
  - Burn infection [Recovered/Resolved]
  - Thermal burn [Recovered/Resolved]
  - Hypoaesthesia [Not Recovered/Not Resolved]
  - Injection site haemorrhage [Recovered/Resolved]
  - Injection site induration [Not Recovered/Not Resolved]
  - Fear [Not Recovered/Not Resolved]
  - Grief reaction [Not Recovered/Not Resolved]
  - Bladder disorder [Unknown]
  - Pain [Recovered/Resolved]
  - Multiple sclerosis relapse [Not Recovered/Not Resolved]
  - Dyspnoea [Recovered/Resolved]
  - Injection site erythema [Unknown]
  - Musculoskeletal stiffness [Not Recovered/Not Resolved]
  - Feeling abnormal [Not Recovered/Not Resolved]
  - Injection site pain [Recovered/Resolved]
  - Anxiety [Unknown]
